FAERS Safety Report 9814324 (Version 36)
Quarter: 2016Q3

REPORT INFORMATION
  Report Type: Report from Study
  Country: CA (occurrence: CA)
  Receive Date: 20140113
  Receipt Date: 20160923
  Transmission Date: 20161109
  Serious: Yes (Death, Hospitalization, Other)
  Sender: FDA-Public Use
  Company Number: PHHY2013CA131412

PATIENT
  Age: 83 Year
  Sex: Female

DRUGS (4)
  1. JAKAFI [Suspect]
     Active Substance: RUXOLITINIB
     Indication: SPLENOMEGALY
     Dosage: 5 MG, BID
     Route: 065
     Dates: start: 2014
  2. NADOLOL. [Concomitant]
     Active Substance: NADOLOL
     Indication: PRODUCT USED FOR UNKNOWN INDICATION
     Dosage: 40 MG, (1/2 PILL AT HS)
     Route: 048
  3. HYDREA [Concomitant]
     Active Substance: HYDROXYUREA
     Indication: PRODUCT USED FOR UNKNOWN INDICATION
     Dosage: 500 MG, QD
     Route: 065
  4. SANDOSTATIN LAR DEPOT [Suspect]
     Active Substance: OCTREOTIDE ACETATE
     Indication: VARICES OESOPHAGEAL
     Dosage: 30 MG,QMO
     Route: 030
     Dates: start: 20130821

REACTIONS (21)
  - Cardiac flutter [Unknown]
  - Pain in extremity [Unknown]
  - Rectal haemorrhage [Recovered/Resolved]
  - Rectal haemorrhage [Recovered/Resolved]
  - Blood pressure diastolic decreased [Unknown]
  - Gout [Unknown]
  - Heart rate decreased [Unknown]
  - Haemorrhage [Not Recovered/Not Resolved]
  - Heart rate increased [Unknown]
  - Haemorrhoids [Unknown]
  - Fatigue [Unknown]
  - Tenderness [Unknown]
  - Death [Fatal]
  - Hepatic haemorrhage [Recovered/Resolved]
  - Rectal haemorrhage [Recovered/Resolved]
  - Product use issue [Unknown]
  - Blood pressure systolic increased [Unknown]
  - Peripheral swelling [Unknown]
  - Eye haemorrhage [Unknown]
  - Haemoglobin decreased [Unknown]
  - Nasopharyngitis [Unknown]

NARRATIVE: CASE EVENT DATE: 20140105
